FAERS Safety Report 10346723 (Version 3)
Quarter: 2014Q4

REPORT INFORMATION
  Report Type: Report from Study
  Country: US (occurrence: US)
  Receive Date: 20140729
  Receipt Date: 20141106
  Transmission Date: 20150528
  Serious: Yes (Hospitalization)
  Sender: FDA-Public Use
  Company Number: US-BIOGENIDEC-2014BI069839

PATIENT
  Sex: Female

DRUGS (14)
  1. TECFIDERA [Suspect]
     Active Substance: DIMETHYL FUMARATE
     Indication: MULTIPLE SCLEROSIS
     Route: 048
     Dates: start: 20140207
  2. PRADAXA [Concomitant]
     Active Substance: DABIGATRAN ETEXILATE MESYLATE
     Dates: start: 201406
  3. IBUPROFEN. [Concomitant]
     Active Substance: IBUPROFEN
  4. FLUOXETINE [Concomitant]
     Active Substance: FLUOXETINE\FLUOXETINE HYDROCHLORIDE
  5. PREMPRO [Concomitant]
     Active Substance: ESTROGENS, CONJUGATED\MEDROXYPROGESTERONE ACETATE
  6. HIPREX [Concomitant]
     Active Substance: METHENAMINE HIPPURATE
  7. VITAMIN D3 [Concomitant]
     Active Substance: CHOLECALCIFEROL
  8. METOPROLOL [Concomitant]
     Active Substance: METOPROLOL
  9. TECFIDERA [Suspect]
     Active Substance: DIMETHYL FUMARATE
     Indication: MULTIPLE SCLEROSIS
     Dates: start: 201301, end: 20140914
  10. BACLOFEN. [Concomitant]
     Active Substance: BACLOFEN
  11. OXYBUTYNIN [Concomitant]
     Active Substance: OXYBUTYNIN
  12. AMIODARONE [Concomitant]
     Active Substance: AMIODARONE
     Dates: start: 201406
  13. AMPYRA [Concomitant]
     Active Substance: DALFAMPRIDINE
  14. FISH OIL [Concomitant]
     Active Substance: FISH OIL

REACTIONS (1)
  - Atrial fibrillation [Unknown]
